FAERS Safety Report 5091909-7 (Version None)
Quarter: 2006Q3

REPORT INFORMATION
  Report Type: 
  Country: None (occurrence: None)
  Receive Date: 20060825
  Receipt Date: 20060821
  Transmission Date: 20061208
  Serious: Yes (Death)
  Sender: FDA-Public Use
  Company Number: S06-FRA-03346-01

PATIENT
  Age: 58 Year
  Sex: Male

DRUGS (10)
  1. SEROPLEX (ESCITALOPRAM) [Suspect]
     Dosage: 10 MG QD PO
     Route: 048
     Dates: start: 20060407, end: 20060629
  2. CARDENSIEL (BISOPROLOL FUMARATE) [Suspect]
     Dosage: 1 QD PO
     Route: 048
     Dates: end: 20060629
  3. PERINDOPRIL ERBUMINE [Suspect]
     Dosage: 2 MG QD PO
     Route: 048
     Dates: end: 20060629
  4. GLUCOPHAGE [Suspect]
     Dosage: 850 MG TID PO
     Route: 048
     Dates: end: 20060629
  5. LASIX [Suspect]
     Dosage: 1 TABLET QD PO
     Route: 048
     Dates: end: 20060629
  6. PRAVASTATIN [Suspect]
     Dosage: 20 MG QD PO
     Route: 048
     Dates: end: 20060629
  7. ASPEGIC 1000 [Concomitant]
  8. DAFALGAN (PARACETAMOL) [Concomitant]
  9. DIAMICRON (GLICLAZIDE) [Concomitant]
  10. ACARBOSE [Concomitant]

REACTIONS (5)
  - CARDIO-RESPIRATORY ARREST [None]
  - COMA [None]
  - CORONARY ARTERY BYPASS [None]
  - MULTI-ORGAN FAILURE [None]
  - VENTRICULAR FIBRILLATION [None]
